FAERS Safety Report 5689907-5 (Version None)
Quarter: 2008Q1

REPORT INFORMATION
  Report Type: 
  Country: None (occurrence: None)
  Receive Date: 20080331
  Receipt Date: 20080331
  Transmission Date: 20080703
  Serious: Yes (Other)
  Sender: FDA-Public Use
  Company Number: None

PATIENT
  Age: 57 Year
  Sex: Female
  Weight: 72.5755 kg

DRUGS (1)
  1. REQUIP [Suspect]
     Indication: RESTLESS LEGS SYNDROME
     Dosage: ONE ONCE DAILY PO
     Route: 048
     Dates: start: 20050720, end: 20080328

REACTIONS (6)
  - CARDIOMYOPATHY [None]
  - DIVORCED [None]
  - GAMBLING [None]
  - ILL-DEFINED DISORDER [None]
  - OBSESSIVE THOUGHTS [None]
  - STRESS [None]
